FAERS Safety Report 19743380 (Version 4)
Quarter: 2021Q3

REPORT INFORMATION
  Report Type: Report from Study
  Country: None (occurrence: JP)
  Receive Date: 20210824
  Receipt Date: 20210921
  Transmission Date: 20211014
  Serious: Yes (Life-Threatening, Hospitalization)
  Sender: FDA-Public Use
  Company Number: JP-ABBVIE-21P-087-4046479-00

PATIENT
  Age: 23 Year
  Sex: Female
  Weight: 64.1 kg

DRUGS (48)
  1. MYDRIN?M [Concomitant]
     Active Substance: TROPICAMIDE
     Indication: GLAUCOMA
  2. GLARGINE BS [Concomitant]
     Indication: GLUCOSE TOLERANCE IMPAIRED
     Dosage: 28 UNITS
     Route: 058
     Dates: start: 20210605
  3. XYLOCAINE [Concomitant]
     Active Substance: LIDOCAINE HYDROCHLORIDE
     Indication: PERIODONTITIS
     Dates: start: 20210630
  4. MYDRIN?P [Concomitant]
     Active Substance: PHENYLEPHRINE HYDROCHLORIDE\TROPICAMIDE
     Indication: GLAUCOMA
  5. NEXIUM [Concomitant]
     Active Substance: ESOMEPRAZOLE MAGNESIUM
     Indication: PROPHYLAXIS
     Route: 048
     Dates: start: 20210531
  6. OMEPRAZOLE. [Concomitant]
     Active Substance: OMEPRAZOLE
     Indication: PROPHYLAXIS AGAINST GASTROINTESTINAL ULCER
     Route: 042
     Dates: start: 20210815
  7. POLAPREZINC [Concomitant]
     Active Substance: POLAPREZINC
     Indication: ANAEMIA
     Route: 048
     Dates: start: 20210811, end: 20210812
  8. IBRUTINIB [Suspect]
     Active Substance: IBRUTINIB
     Route: 048
     Dates: start: 20210514, end: 20210519
  9. IBRUTINIB [Suspect]
     Active Substance: IBRUTINIB
     Route: 048
     Dates: start: 20210520, end: 20210526
  10. HEPARINOID [Concomitant]
     Active Substance: CHONDROITIN SULFATE (BOVINE)
     Indication: CHRONIC GRAFT VERSUS HOST DISEASE
     Route: 061
  11. ZOLPIDEM [Concomitant]
     Active Substance: ZOLPIDEM TARTRATE
     Indication: INSOMNIA
     Route: 048
     Dates: start: 20181019
  12. MIYA?BM [Concomitant]
     Active Substance: CLOSTRIDIUM BUTYRICUM SPORES STRAIN M-55
     Indication: PROPHYLAXIS
     Route: 048
     Dates: start: 20190809
  13. FEBURIC [Concomitant]
     Active Substance: FEBUXOSTAT
     Indication: HYPERURICAEMIA
     Route: 048
     Dates: start: 20200708
  14. SAMTIREL [Concomitant]
     Active Substance: ATOVAQUONE
     Indication: PROPHYLAXIS
     Route: 048
     Dates: start: 20210428
  15. IPD [Concomitant]
     Active Substance: SUPLATAST TOSILATE
     Indication: CHRONIC GRAFT VERSUS HOST DISEASE
     Route: 048
     Dates: start: 20210509
  16. CELECOXIB. [Concomitant]
     Active Substance: CELECOXIB
     Indication: SKIN INDURATION
     Dates: start: 20210804
  17. HYALEIN [Concomitant]
     Active Substance: HYALURONATE SODIUM
     Indication: PROPHYLAXIS
  18. PARMODIA [Concomitant]
     Active Substance: PEMAFIBRATE
     Indication: DYSLIPIDAEMIA
     Route: 048
     Dates: start: 20190809
  19. URSODEOXYCHOLIC ACID [Concomitant]
     Active Substance: URSODIOL
     Indication: ALANINE AMINOTRANSFERASE INCREASED
     Route: 048
     Dates: start: 20190822
  20. MIKELUNA [Concomitant]
     Active Substance: CARTEOLOL HYDROCHLORIDE\LATANOPROST
     Indication: PROPHYLAXIS
     Route: 047
     Dates: start: 20200303
  21. L?KEFLEX [Concomitant]
     Indication: SKIN INDURATION
     Route: 048
     Dates: start: 20210721
  22. IBRUTINIB [Suspect]
     Active Substance: IBRUTINIB
     Indication: CHRONIC GRAFT VERSUS HOST DISEASE
     Route: 048
     Dates: start: 20181017, end: 20210428
  23. AZULENE [Concomitant]
     Active Substance: AZULENE
     Indication: STOMATITIS
     Dates: start: 20190728
  24. ACICLOVIR [Concomitant]
     Active Substance: ACYCLOVIR
     Indication: PROPHYLAXIS
     Route: 048
     Dates: start: 20201001
  25. MYDRIN?M [Concomitant]
     Active Substance: TROPICAMIDE
     Indication: CATARACT
     Route: 047
     Dates: start: 20201111
  26. MYDRIN?P [Concomitant]
     Active Substance: PHENYLEPHRINE HYDROCHLORIDE\TROPICAMIDE
     Indication: CATARACT
     Route: 047
     Dates: start: 20210127
  27. CLOBETASOL PROPIONATE. [Concomitant]
     Active Substance: CLOBETASOL PROPIONATE
     Indication: CHRONIC GRAFT VERSUS HOST DISEASE
     Route: 061
     Dates: start: 20210514
  28. NERISONA [Concomitant]
     Active Substance: DIFLUCORTOLONE VALERATE
     Indication: CHRONIC GRAFT VERSUS HOST DISEASE
     Route: 061
     Dates: start: 20210517
  29. RINDERON V [Concomitant]
     Active Substance: BETAMETHASONE VALERATE
     Indication: CHRONIC GRAFT VERSUS HOST DISEASE
     Route: 061
     Dates: start: 20210527
  30. ATARAX?P [Concomitant]
     Active Substance: HYDROXYZINE HYDROCHLORIDE
     Indication: INSOMNIA
     Route: 048
     Dates: start: 20210605
  31. PROPETO [Concomitant]
     Active Substance: PETROLATUM
     Indication: SKIN DISORDER PROPHYLAXIS
     Route: 061
     Dates: start: 20181226
  32. LORAZEPAM. [Concomitant]
     Active Substance: LORAZEPAM
     Indication: DEPRESSION
     Route: 048
     Dates: start: 20191226
  33. IPD [Concomitant]
     Active Substance: SUPLATAST TOSILATE
     Indication: CHRONIC GRAFT VERSUS HOST DISEASE
     Route: 048
     Dates: start: 20210811, end: 20210814
  34. PROTOPIC [Concomitant]
     Active Substance: TACROLIMUS
     Indication: CHRONIC GRAFT VERSUS HOST DISEASE
     Route: 061
     Dates: start: 20210521
  35. POLARAMINE [Concomitant]
     Active Substance: DEXCHLORPHENIRAMINE MALEATE
     Indication: PROPHYLAXIS
     Route: 042
     Dates: start: 20210526
  36. POLARAMINE [Concomitant]
     Active Substance: DEXCHLORPHENIRAMINE MALEATE
     Route: 042
     Dates: start: 20210813
  37. FILGRASTIM BS [FILGRASTIM BIOSIMILAR 2] [Concomitant]
     Indication: NEUTROPHIL COUNT DECREASED
     Route: 042
     Dates: start: 20210813
  38. TOARASET [Concomitant]
     Active Substance: ACETAMINOPHEN\TRAMADOL HYDROCHLORIDE
     Indication: SKIN INDURATION
     Route: 048
     Dates: start: 20210530
  39. ACTONEL [Concomitant]
     Active Substance: RISEDRONATE SODIUM
     Indication: PROPHYLAXIS
     Route: 048
     Dates: start: 20210610
  40. AZUNOL [Concomitant]
     Indication: PERIODONTITIS
     Route: 061
     Dates: start: 20210630
  41. FUROSEMIDE. [Concomitant]
     Active Substance: FUROSEMIDE
     Indication: CARDIAC FAILURE
     Dosage: 40?60 MG
     Route: 042
     Dates: start: 20210814
  42. TRAZENTA [Concomitant]
     Active Substance: LINAGLIPTIN
     Indication: GLUCOSE TOLERANCE IMPAIRED
     Route: 048
     Dates: start: 20190814
  43. LOCOID [Concomitant]
     Active Substance: HYDROCORTISONE BUTYRATE
     Indication: CHRONIC GRAFT VERSUS HOST DISEASE
     Route: 061
     Dates: start: 20210514
  44. VFEND [Concomitant]
     Active Substance: VORICONAZOLE
     Indication: PROPHYLAXIS
     Route: 048
     Dates: start: 20210521
  45. PIRENOXINE [Concomitant]
     Active Substance: PIRENOXINE
     Indication: CATARACT
     Route: 047
     Dates: start: 20210501
  46. NOVORAPID [Concomitant]
     Active Substance: INSULIN ASPART
     Indication: GLUCOSE TOLERANCE IMPAIRED
     Dosage: 10?28 UNITS
     Route: 058
     Dates: start: 20210611
  47. ACETAMINOPHEN. [Concomitant]
     Active Substance: ACETAMINOPHEN
     Indication: SKIN INDURATION
     Route: 048
     Dates: start: 20210728, end: 20210804
  48. EPISIL [Concomitant]
     Indication: CHRONIC GRAFT VERSUS HOST DISEASE
     Route: 061
     Dates: start: 20210804

REACTIONS (2)
  - Cerebral haemorrhage [Not Recovered/Not Resolved]
  - Sepsis [Recovered/Resolved]

NARRATIVE: CASE EVENT DATE: 20210813
